FAERS Safety Report 7835431-0 (Version None)
Quarter: 2011Q4

REPORT INFORMATION
  Report Type: 
  Country: None (occurrence: None)
  Receive Date: 20111020
  Receipt Date: 20111010
  Transmission Date: 20120403
  Serious: Yes (Other)
  Sender: FDA-Public Use
  Company Number: AUR-APL-2011-05440

PATIENT
  Age: 51 Year
  Sex: Female

DRUGS (5)
  1. STAVUDINE [Suspect]
     Indication: ANTIRETROVIRAL THERAPY
  2. LAMIVUDINE [Suspect]
     Indication: ANTIRETROVIRAL THERAPY
  3. MULTI-VITAMINS [Concomitant]
  4. EFAVIRENZ [Suspect]
     Indication: ANTIRETROVIRAL THERAPY
  5. TRIMETHOPRIM-SULFAMETHOXAZINE(BACTRIM) [Concomitant]

REACTIONS (1)
  - ACUTE FEBRILE NEUTROPHILIC DERMATOSIS [None]
